FAERS Safety Report 15923646 (Version 1)
Quarter: 2019Q1

REPORT INFORMATION
  Report Type: Spontaneous
  Country: US (occurrence: US)
  Receive Date: 20190206
  Receipt Date: 20190206
  Transmission Date: 20190417
  Serious: No
  Sender: FDA-Public Use
  Company Number: None

PATIENT
  Age: 46 Year
  Sex: Male
  Weight: 85.5 kg

DRUGS (2)
  1. CLONAZEPAM .5MG TABLET UNKNOWN [Suspect]
     Active Substance: CLONAZEPAM
     Indication: ANXIETY
     Dosage: ?          QUANTITY:30 TABLET(S);?
     Route: 048
     Dates: start: 20190117, end: 20190206
  2. METOPROLOL. [Concomitant]
     Active Substance: METOPROLOL

REACTIONS (7)
  - Panic attack [None]
  - Tremor [None]
  - Disturbance in attention [None]
  - Insomnia [None]
  - Abdominal pain upper [None]
  - Treatment failure [None]
  - Burning sensation [None]

NARRATIVE: CASE EVENT DATE: 20190206
